FAERS Safety Report 24209173 (Version 1)
Quarter: 2024Q3

REPORT INFORMATION
  Report Type: Other
  Country: CA (occurrence: CA)
  Receive Date: 20240814
  Receipt Date: 20240814
  Transmission Date: 20241016
  Serious: Yes (Hospitalization)
  Sender: PFIZER
  Company Number: CA-PFIZER INC-202400235754

PATIENT
  Sex: Female

DRUGS (5)
  1. HYDROCORTISONE [Suspect]
     Active Substance: HYDROCORTISONE\HYDROCORTISONE ACETATE
     Indication: Adrenal insufficiency
     Route: 065
  2. FLUDROCORTISONE [Suspect]
     Active Substance: FLUDROCORTISONE
     Indication: Adrenal insufficiency
     Route: 065
  3. GLUCAGON [Suspect]
     Active Substance: GLUCAGON\GLUCAGON HYDROCHLORIDE\WATER
     Indication: Hypoglycaemia neonatal
     Dosage: 1 MG, 1X/DAY
     Route: 065
  4. DEXTROSE\SODIUM CHLORIDE [Concomitant]
     Active Substance: DEXTROSE\SODIUM CHLORIDE
     Indication: Hypoglycaemia neonatal
     Route: 065
  5. POTASSIUM CHLORIDE [Concomitant]
     Active Substance: POTASSIUM CHLORIDE
     Indication: Hypoglycaemia neonatal
     Route: 065

REACTIONS (4)
  - Adrenal insufficiency neonatal [Recovered/Resolved]
  - Neonatal hyponatraemia [Recovered/Resolved]
  - Neonatal seizure [Recovered/Resolved]
  - Thrombocytopenia neonatal [Recovered/Resolved]
